FAERS Safety Report 21668187 (Version 1)
Quarter: 2022Q4

REPORT INFORMATION
  Report Type: Spontaneous
  Country: ES (occurrence: ES)
  Receive Date: 20221201
  Receipt Date: 20221201
  Transmission Date: 20230112
  Serious: Yes (Hospitalization)
  Sender: FDA-Public Use
  Company Number: None

PATIENT
  Age: 85 Year
  Sex: Male

DRUGS (9)
  1. FENTANYL [Suspect]
     Active Substance: FENTANYL
     Indication: Back pain
     Dosage: 25.0 25 MCG/H EVERY 72 HOURS, DURATION : 1 DAY, FENTANIL (1543A)
     Route: 065
     Dates: start: 20220314, end: 20220315
  2. BISOPROLOL [Concomitant]
     Active Substance: BISOPROLOL
     Indication: Product used for unknown indication
     Dosage: 2.5 MG DE, STRENGTH : 2.5 MG, 28 TABLETS
     Dates: start: 20081122
  3. LYRICA [Concomitant]
     Active Substance: PREGABALIN
     Indication: Sciatica
     Dosage: 75.0 MG DECE, 56 CAPSULES STRENGTH : 75 MG
     Dates: start: 20211018
  4. PARACETAMOL CINFA [Concomitant]
     Indication: Sciatica
     Dosage: 1.0 G DECOCE, PARACETAMOL CINFA 1 G TABLETS EFG, 40 TABLETS
     Dates: start: 20200601
  5. ASPIRIN [Concomitant]
     Active Substance: ASPIRIN
     Indication: Product used for unknown indication
     Dosage: 100.0 MG DE, ADIRO 100 MG GASTRORESISTANT TABLETS EFG, 30 TABLETS (PVC- ALUMINUM)
     Dates: start: 20200716
  6. DECAPEPTYL [Concomitant]
     Indication: Neoplasm malignant
     Dosage: 22.5 MG, DECAPEPTYL SEMESTER 22.5 MG POWDER AND SOLVENT FOR SUSPENDED-RELEASE SUSPENSION FOR INJECTI
     Dates: start: 20220309
  7. OMEPRAZOLE RATIO [Concomitant]
     Indication: Product used for unknown indication
     Dosage: 20.0 MG A-DE, OMEPRAZOLE RATIO 20 MG GASTRORESISTANT HARD CAPSULES EFG, 56 CAPSULES
     Dates: start: 20081122
  8. ATORVASTATIN CINFA [Concomitant]
     Indication: Product used for unknown indication
     Dosage: 20.0 MG CE, ATORVASTATIN CINFA 20 MG FILM-COATED TABLETS EFG, 28 TABLETS
     Dates: start: 20081121
  9. NOLOTIL [Concomitant]
     Indication: Contusion
     Dosage: 575.0 MG C/12 H, 20 CAPSULES, STRENGTH : 575
     Dates: start: 20180828

REACTIONS (1)
  - Disorientation [Recovered/Resolved]

NARRATIVE: CASE EVENT DATE: 20220315
